FAERS Safety Report 11139212 (Version 2)
Quarter: 2015Q4

REPORT INFORMATION
  Report Type: Other
  Country: GB (occurrence: GB)
  Receive Date: 20150527
  Receipt Date: 20151009
  Transmission Date: 20160304
  Serious: Yes (Death, Other)
  Sender: FDA-Public Use
  Company Number: GB-SUN PHARMACEUTICAL INDUSTRIES LTD-2015SUN01199

PATIENT
  Age: 23 Month
  Sex: Female

DRUGS (2)
  1. CARBOPLATIN. [Suspect]
     Active Substance: CARBOPLATIN
     Indication: ATYPICAL TERATOID/RHABDOID TUMOUR OF CNS
     Dosage: 500 MG/M2, QD
     Route: 042
     Dates: start: 20150401, end: 20150403
  2. THIOTEPA. [Suspect]
     Active Substance: THIOTEPA
     Indication: ATYPICAL TERATOID/RHABDOID TUMOUR OF CNS
     Dosage: 300 MG/M2, QD
     Route: 042
     Dates: start: 20150401, end: 20150403

REACTIONS (2)
  - Systemic candida [Fatal]
  - Sepsis [Not Recovered/Not Resolved]
